FAERS Safety Report 4340852-7 (Version None)
Quarter: 2004Q2

REPORT INFORMATION
  Report Type: 
  Country: None (occurrence: None)
  Receive Date: 20040414
  Receipt Date: 20040325
  Transmission Date: 20050107
  Serious: No
  Sender: FDA-Public Use
  Company Number: J200302878 (200302878S)

PATIENT
  Age: 72 Year
  Sex: Male

DRUGS (13)
  1. (MYSLEE) ZOLPIDEM TABLET 10MG [Suspect]
     Indication: INSOMNIA
     Dosage: 10MG
     Route: 048
     Dates: start: 20030729, end: 20030729
  2. ALTAT (ROXATIDINE ACETATE HYDROCHLORIDE) [Concomitant]
  3. GASLON N (IRSOGLADINE MALEATE) [Concomitant]
  4. ENTERONON-R (ANTIBIOTICS-RESISTANT LACTIC ACID BACTERIAE) [Concomitant]
  5. BAKTAR (SULFAMETHOXAZOLE TRIMETHOPRIM 1) [Concomitant]
  6. MUCODYNE (CARBOCYSTEINE) [Concomitant]
  7. MUCOSOLVAN (AMBROXOL HYDROCHLORIDE) [Concomitant]
  8. BISOLVON (BROMHEXINE HYDROCHLORIDE) [Concomitant]
  9. ALLOPURINOL [Concomitant]
  10. SOLDEM 3A (MAINTENANCE MEDIUM 3) [Concomitant]
  11. TIENAM (IMIPENEM-CILASTATIN) [Concomitant]
  12. DIFLUCAN [Concomitant]
  13. ISOTONIC SODIUM CHLORIDE (ISOTONIC SODIUM CHLORIDE SOLUTION) [Concomitant]

REACTIONS (14)
  - ANAPHYLACTIC REACTION [None]
  - ANXIETY [None]
  - ASTHMA [None]
  - BLOOD PRESSURE SYSTOLIC INCREASED [None]
  - CARDIAC FAILURE [None]
  - COUGH [None]
  - HEART RATE INCREASED [None]
  - INCOHERENT [None]
  - INCREASED UPPER AIRWAY SECRETION [None]
  - PCO2 DECREASED [None]
  - PO2 DECREASED [None]
  - PRODUCTIVE COUGH [None]
  - SEPTIC SHOCK [None]
  - SNORING [None]
